FAERS Safety Report 7360937-0 (Version None)
Quarter: 2011Q1

REPORT INFORMATION
  Report Type: 
  Country: None (occurrence: None)
  Receive Date: 20110318
  Receipt Date: 20110314
  Transmission Date: 20110831
  Serious: Yes (Hospitalization, Other)
  Sender: FDA-Public Use
  Company Number: US-ELI_LILLY_AND_COMPANY-US201103004950

PATIENT
  Sex: Female

DRUGS (1)
  1. GEMZAR [Suspect]
     Dates: start: 20101228

REACTIONS (2)
  - NEUTROPENIA [None]
  - HOSPITALISATION [None]
